FAERS Safety Report 20496843 (Version 1)
Quarter: 2022Q1

REPORT INFORMATION
  Report Type: Spontaneous
  Country: US (occurrence: US)
  Receive Date: 20220221
  Receipt Date: 20220221
  Transmission Date: 20220423
  Serious: No
  Sender: FDA-Public Use
  Company Number: US-AMGEN-USASP2022025402

PATIENT
  Sex: Female

DRUGS (1)
  1. XGEVA [Suspect]
     Active Substance: DENOSUMAB
     Indication: Neoplasm malignant
     Dosage: EVERY 28 DAYS
     Route: 065
     Dates: end: 202112

REACTIONS (2)
  - Off label use [Unknown]
  - Wisdom teeth removal [Unknown]
